FAERS Safety Report 24867435 (Version 1)
Quarter: 2025Q1

REPORT INFORMATION
  Report Type: Spontaneous
  Country: PL (occurrence: PL)
  Receive Date: 20250121
  Receipt Date: 20250121
  Transmission Date: 20250409
  Serious: Yes (Other)
  Sender: NOVARTIS
  Company Number: PL-002147023-NVSC2025PL006174

PATIENT
  Age: 76 Year
  Sex: Female

DRUGS (3)
  1. CYCLOSPORINE [Suspect]
     Active Substance: CYCLOSPORINE
     Indication: Aplastic anaemia
     Route: 065
     Dates: start: 202204
  2. CYCLOSPORINE [Suspect]
     Active Substance: CYCLOSPORINE
     Route: 065
     Dates: start: 202206, end: 202302
  3. ELTROMBOPAG [Concomitant]
     Active Substance: ELTROMBOPAG
     Indication: Product used for unknown indication
     Dosage: 75 MG, QD
     Route: 065
     Dates: start: 202408

REACTIONS (3)
  - Parkinson^s disease [Unknown]
  - Hirsutism [Unknown]
  - Extrapyramidal disorder [Unknown]
